FAERS Safety Report 9447276 (Version 1)
Quarter: 2013Q3

REPORT INFORMATION
  Report Type: Spontaneous
  Country: US (occurrence: US)
  Receive Date: 20130808
  Receipt Date: 20130808
  Transmission Date: 20140515
  Serious: Yes (Hospitalization, Other)
  Sender: FDA-Public Use
  Company Number: US-MERCK-1205USA00159

PATIENT
  Age: 71 Year
  Sex: Male
  Weight: 94.33 kg

DRUGS (1)
  1. JANUMET [Suspect]
     Indication: GLUCOSE TOLERANCE IMPAIRED
     Dosage: 50-500 MG, TWICE A DAY
     Route: 048
     Dates: start: 2009, end: 2011

REACTIONS (11)
  - Cholelithiasis [Unknown]
  - Gastric disorder [Unknown]
  - Hypophagia [Unknown]
  - Peripheral coldness [Unknown]
  - Dyspnoea [Unknown]
  - Weight decreased [Unknown]
  - Dizziness [Unknown]
  - Hyperhidrosis [Unknown]
  - Back pain [Unknown]
  - Diarrhoea [Unknown]
  - Abdominal pain upper [Unknown]
